FAERS Safety Report 18994927 (Version 1)
Quarter: 2021Q1

REPORT INFORMATION
  Report Type: Spontaneous
  Country: US (occurrence: US)
  Receive Date: 20210310
  Receipt Date: 20210310
  Transmission Date: 20210420
  Serious: No
  Sender: FDA-Public Use
  Company Number: US-EYEVANCE PHARMACEUTICALS-2020EYE00085

PATIENT
  Sex: Female

DRUGS (6)
  1. VOLTAREN [Suspect]
     Active Substance: DICLOFENAC SODIUM
  2. FLUOROMETHOLONE. [Suspect]
     Active Substance: FLUOROMETHOLONE
  3. PREDNISOLONE ACETATE. [Suspect]
     Active Substance: PREDNISOLONE ACETATE
  4. NEVANAC [Suspect]
     Active Substance: NEPAFENAC
  5. DEXAMETHASONE. [Suspect]
     Active Substance: DEXAMETHASONE
  6. DICLOFENAC [Suspect]
     Active Substance: DICLOFENAC

REACTIONS (1)
  - Treatment failure [Unknown]
